FAERS Safety Report 6155544-1 (Version None)
Quarter: 2009Q2

REPORT INFORMATION
  Report Type: 
  Country: None (occurrence: None)
  Receive Date: 20090415
  Receipt Date: 20090318
  Transmission Date: 20091009
  Serious: No
  Sender: FDA-Public Use
  Company Number: US-BAYER-200910405BCC

PATIENT
  Age: 72 Year
  Sex: Female
  Weight: 59 kg

DRUGS (4)
  1. ALEVE [Suspect]
     Indication: BACK PAIN
     Dosage: TOTAL DAILY DOSE: 440 MG  UNIT DOSE: 220 MG
     Dates: start: 20090202
  2. MULTI-VITAMIN [Concomitant]
     Dosage: BIOTICS RESEARCH
  3. ACIDOPHILUS [Concomitant]
  4. CORTISONE [Concomitant]
     Dosage: 5 SHOTS

REACTIONS (1)
  - EAR DISCOMFORT [None]
